FAERS Safety Report 9076951 (Version 1)
Quarter: 2013Q1

REPORT INFORMATION
  Report Type: Report from Study
  Country: US (occurrence: US)
  Receive Date: 20130129
  Receipt Date: 20130129
  Transmission Date: 20140127
  Serious: No
  Sender: FDA-Public Use
  Company Number: US-ABBOTT-12P-163-0893136-00

PATIENT
  Age: 85 Year
  Sex: Female

DRUGS (3)
  1. HUMIRA 40 MG/0.8 ML PEN [Suspect]
     Indication: CROHN^S DISEASE
     Dates: start: 20111102
  2. OCUVITE [Concomitant]
     Indication: MACULAR DEGENERATION
  3. PERCOLONE [Concomitant]
     Indication: MUSCLE SPASMS

REACTIONS (6)
  - Injection site pain [Recovered/Resolved]
  - Wrong technique in drug usage process [Unknown]
  - Incorrect dose administered [Unknown]
  - Abdominal pain [Recovering/Resolving]
  - Flatulence [Recovering/Resolving]
  - Diarrhoea [Recovering/Resolving]
